FAERS Safety Report 9868418 (Version 2)
Quarter: 2014Q1

REPORT INFORMATION
  Report Type: Spontaneous
  Country: GT (occurrence: GT)
  Receive Date: 20140204
  Receipt Date: 20140206
  Transmission Date: 20141002
  Serious: Yes (Other)
  Sender: FDA-Public Use
  Company Number: PHHY2014GT013371

PATIENT
  Age: 67 Year
  Sex: Female
  Weight: 61.23 kg

DRUGS (2)
  1. DIOVAN [Suspect]
     Indication: HYPERTENSION
     Dosage: 320 MG, QD
     Route: 048
     Dates: start: 20131001
  2. DIOVAN [Suspect]
     Dosage: 0.5 DF (320 MG), QD
     Route: 048

REACTIONS (4)
  - Intermittent claudication [Recovering/Resolving]
  - Muscle spasms [Recovering/Resolving]
  - White blood cell count decreased [Unknown]
  - Wrong technique in drug usage process [Unknown]
